FAERS Safety Report 11009739 (Version 3)
Quarter: 2015Q2

REPORT INFORMATION
  Report Type: Spontaneous
  Country: JP (occurrence: JP)
  Receive Date: 20150410
  Receipt Date: 20150612
  Transmission Date: 20150821
  Serious: Yes (Death, Hospitalization)
  Sender: FDA-Public Use
  Company Number: JP-BAYER-2015-122020

PATIENT
  Age: 60 Year
  Sex: Female
  Weight: 65 kg

DRUGS (5)
  1. RIVOTRIL [Concomitant]
     Active Substance: CLONAZEPAM
     Dosage: DAILY DOSE 1 MG
     Route: 048
     Dates: start: 20021218, end: 20141117
  2. MUCOSTA [Concomitant]
     Active Substance: REBAMIPIDE
     Dosage: DAILY DOSE 200 MG
     Route: 048
     Dates: start: 20140517, end: 20141117
  3. BETAFERON [Suspect]
     Active Substance: INTERFERON BETA-1B
     Indication: MULTIPLE SCLEROSIS
     Dosage: 8 MIU, QOD
     Route: 058
     Dates: start: 20060818, end: 20141117
  4. LOXOPROFEN [Concomitant]
     Active Substance: LOXOPROFEN
     Dosage: DAILY DOSE 120 MG
     Route: 048
     Dates: start: 20021218, end: 20141117
  5. PAXIL [Concomitant]
     Active Substance: PAROXETINE HYDROCHLORIDE
     Dosage: DAILY DOSE 20 MG
     Route: 048
     Dates: start: 20070131, end: 20141117

REACTIONS (4)
  - Subarachnoid haemorrhage [Fatal]
  - Fall [None]
  - Pyrexia [None]
  - Depressed level of consciousness [Fatal]

NARRATIVE: CASE EVENT DATE: 20141117
